FAERS Safety Report 18313843 (Version 3)
Quarter: 2022Q4

REPORT INFORMATION
  Report Type: Spontaneous
  Country: DE (occurrence: DE)
  Receive Date: 20200925
  Receipt Date: 20221026
  Transmission Date: 20230113
  Serious: Yes (Hospitalization)
  Sender: FDA-Public Use
  Company Number: DE-ANIPHARMA-2020-DE-000215

PATIENT
  Age: 60 Year
  Sex: Male
  Weight: 97 kg

DRUGS (8)
  1. CANDESARTAN CILEXETIL AND HYDROCHLOROTHIAZIDE [Suspect]
     Active Substance: CANDESARTAN CILEXETIL\HYDROCHLOROTHIAZIDE
     Indication: Product used for unknown indication
     Dosage: 32/25 MILLIGRAM, EVERY DAY
     Route: 048
  2. METFORMIN HYDROCHLORIDE [Suspect]
     Active Substance: METFORMIN HYDROCHLORIDE
     Dosage: 1000 MG BID
     Route: 048
  3. CLOPIDOGREL [Concomitant]
     Active Substance: CLOPIDOGREL BISULFATE
     Dosage: 75 MG QD
     Route: 048
  4. EMPAGLIFLOZIN [Concomitant]
     Active Substance: EMPAGLIFLOZIN
     Dosage: 25 MG QD
     Route: 048
  5. CARBOPLATIN [Suspect]
     Active Substance: CARBOPLATIN
     Route: 065
     Dates: start: 20200127
  6. PACLITAXEL [Suspect]
     Active Substance: PACLITAXEL
     Route: 065
     Dates: start: 20200127
  7. AMLODIPINE BESYLATE [Concomitant]
     Active Substance: AMLODIPINE BESYLATE
     Dosage: 10 MG QD
     Route: 048
  8. ASPIRIN [Concomitant]
     Active Substance: ASPIRIN
     Dosage: 100 MG QD
     Route: 048

REACTIONS (4)
  - Condition aggravated [Recovering/Resolving]
  - General physical health deterioration [Recovering/Resolving]
  - Product monitoring error [Recovering/Resolving]
  - Pneumonia [Recovering/Resolving]
